FAERS Safety Report 8500493-4 (Version None)
Quarter: 2012Q3

REPORT INFORMATION
  Report Type: 
  Country: None (occurrence: None)
  Receive Date: 20120705
  Receipt Date: 20120705
  Transmission Date: 20120928
  Serious: Yes (Hospitalization)
  Sender: FDA-Public Use
  Company Number: None

PATIENT
  Sex: Female
  Weight: 54 kg

DRUGS (3)
  1. CYCLOPHOSPHAMIDE [Suspect]
     Dosage: 1275 MG CYCLOPHOSPHAMIDE (250MG/M2) OVER 30 MINUTES DAYS 1-3 EVERY 28 DAYS.
     Dates: end: 20120516
  2. RITUXIMAB (MOAB C2B8 ANTI CD20, CHIMERIC) [Suspect]
     Dosage: 850 MG
     Dates: end: 20120514
  3. FLUDARABINE PHOSPHATE [Suspect]
     Dosage: 126 MG
     Dates: end: 20120516

REACTIONS (16)
  - DECREASED APPETITE [None]
  - HAEMOGLOBIN DECREASED [None]
  - ABDOMINAL PAIN LOWER [None]
  - COUGH [None]
  - VOMITING [None]
  - ULTRASOUND SCAN ABNORMAL [None]
  - POOR PERSONAL HYGIENE [None]
  - BLOOD ALKALINE PHOSPHATASE INCREASED [None]
  - ASPARTATE AMINOTRANSFERASE INCREASED [None]
  - NAUSEA [None]
  - PYREXIA [None]
  - DYSPNOEA EXERTIONAL [None]
  - CHILLS [None]
  - FEELING OF BODY TEMPERATURE CHANGE [None]
  - ALANINE AMINOTRANSFERASE INCREASED [None]
  - ABDOMINAL PAIN [None]
